FAERS Safety Report 4686701-9 (Version None)
Quarter: 2005Q2

REPORT INFORMATION
  Report Type: 
  Country: None (occurrence: None)
  Receive Date: 20050608
  Receipt Date: 20050523
  Transmission Date: 20051028
  Serious: Yes (Death, Hospitalization, Other)
  Sender: FDA-Public Use
  Company Number: 2005-05-2279

PATIENT
  Age: 80 Year
  Sex: Female

DRUGS (10)
  1. SALBUTAMOL SULPHATE ORAL AEROSOL [Suspect]
     Dosage: 2 PUFFS QID ORAL AER INH
     Route: 048
  2. TIOTROPIUM BROMIDE INHALATION SOLUTION [Suspect]
     Indication: CHRONIC OBSTRUCTIVE PULMONARY DISEASE
     Dosage: 18 MCG QD ORAL AER INH
     Route: 048
  3. DEXAMETHASONE [Suspect]
     Dosage: 2 MG BID
  4. LACTULOSE [Suspect]
     Dosage: 10-20ML BID
  5. LANSOPRAZOLE [Suspect]
     Dosage: 15MG QD ORAL
     Route: 048
  6. PARACETAMOL [Suspect]
     Dosage: 500MG (2) QID ORAL
     Route: 048
  7. QUININE BISULFATE [Suspect]
     Dosage: 300 MG QD ORAL
     Route: 048
  8. SENNA [Suspect]
     Dosage: 7.5MCG HS ORAL
     Route: 048
  9. SERETIDE (SALMETEROL XINAFOATE/FLUTICASONE PROPIONAT [Suspect]
     Dosage: 500MCG QD ORAL AER INH
     Route: 048
  10. SALMETEROL XINAFOATE [Suspect]
     Dosage: 125 MCG 2 QD

REACTIONS (1)
  - NON-HODGKIN'S LYMPHOMA [None]
